FAERS Safety Report 10575735 (Version 3)
Quarter: 2015Q1

REPORT INFORMATION
  Report Type: Spontaneous
  Country: US (occurrence: US)
  Receive Date: 20141111
  Receipt Date: 20150203
  Transmission Date: 20150720
  Serious: Yes (Other)
  Sender: FDA-Public Use
  Company Number: US-PFIZER INC-2014306376

PATIENT
  Age: 56 Year
  Sex: Male
  Weight: 77.98 kg

DRUGS (13)
  1. LYRICA [Suspect]
     Active Substance: PREGABALIN
     Indication: NEURALGIA
     Dosage: 250 MG, 1X/DAY
     Route: 048
  2. VITAMIN C [Concomitant]
     Active Substance: ASCORBIC ACID
     Indication: VITAMIN SUPPLEMENTATION
     Dosage: 200 MG, 1X/DAY
     Route: 048
  3. NEURONTIN [Suspect]
     Active Substance: GABAPENTIN
     Indication: COMPLEX REGIONAL PAIN SYNDROME
     Dosage: 300 MG, 4X/DAY
     Route: 048
     Dates: start: 201303
  4. DOXEPIN [Concomitant]
     Active Substance: DOXEPIN
     Dosage: 200 MG, (QHS)
     Route: 048
  5. LYRICA [Suspect]
     Active Substance: PREGABALIN
     Indication: DEPRESSION
     Dosage: 75 MG, 3X/DAY
     Route: 048
  6. DOXEPIN [Concomitant]
     Active Substance: DOXEPIN
     Indication: INSOMNIA
     Dosage: UNK
     Route: 048
     Dates: start: 20130624
  7. LYRICA [Suspect]
     Active Substance: PREGABALIN
     Indication: COMPLEX REGIONAL PAIN SYNDROME
     Dosage: 150 MG, 2X/DAY
     Route: 048
     Dates: start: 201405, end: 20141015
  8. DOXEPIN [Concomitant]
     Active Substance: DOXEPIN
     Indication: DEPRESSION
     Dosage: 30 MG, DAILY
     Route: 048
     Dates: start: 20130827
  9. DOXEPIN [Concomitant]
     Active Substance: DOXEPIN
     Dosage: 50 MG, 4X/DAY
     Route: 048
  10. LEVOTHYROXINE [Concomitant]
     Active Substance: LEVOTHYROXINE
     Indication: THYROID DISORDER
     Dosage: 100 MG, 1X/DAY
     Route: 048
  11. DOXEPIN [Concomitant]
     Active Substance: DOXEPIN
     Dosage: 50 MG, (QHS)
     Route: 048
     Dates: start: 20130909
  12. VITAMIN D [Concomitant]
     Active Substance: CHOLECALCIFEROL
     Indication: VITAMIN SUPPLEMENTATION
     Dosage: 2000 IU, DAILY
     Route: 048
  13. BAYERS MEN^S HEALTH FORMULAR MULTIVITAMIN AND MINERAL SUPPLEMENT [Concomitant]
     Indication: VITAMIN SUPPLEMENTATION
     Dosage: 1 DF, 1X/DAY
     Route: 048

REACTIONS (10)
  - Condition aggravated [Unknown]
  - Paraesthesia [Unknown]
  - Impaired work ability [Unknown]
  - Disturbance in attention [Unknown]
  - Drug ineffective for unapproved indication [Unknown]
  - Burning sensation [Unknown]
  - Muscle tightness [Unknown]
  - Major depression [Recovering/Resolving]
  - Mood altered [Not Recovered/Not Resolved]
  - Pain [Unknown]
